FAERS Safety Report 4578729-4 (Version None)
Quarter: 2005Q1

REPORT INFORMATION
  Report Type: 
  Country: None (occurrence: None)
  Receive Date: 20050211
  Receipt Date: 20050202
  Transmission Date: 20050727
  Serious: Yes (Hospitalization)
  Sender: FDA-Public Use
  Company Number: FR-GLAXOSMITHKLINE-B0369491A

PATIENT
  Age: 75 Year
  Sex: Male

DRUGS (11)
  1. AVODART [Suspect]
     Indication: BENIGN PROSTATIC HYPERPLASIA
     Dosage: .5MG PER DAY
     Route: 048
     Dates: end: 20041225
  2. ALDACTONE [Suspect]
     Dosage: 2UNIT PER DAY
     Route: 048
     Dates: end: 20041229
  3. COUMADIN [Suspect]
     Dosage: 2UNIT PER DAY
     Route: 048
     Dates: start: 20040815
  4. TADENAN [Suspect]
     Dosage: 2UNIT PER DAY
     Route: 048
     Dates: end: 20041223
  5. LODALES [Suspect]
     Dosage: 1UNIT PER DAY
     Route: 048
     Dates: end: 20041225
  6. FUROSEMIDE [Concomitant]
  7. KREDEX [Concomitant]
  8. TRIATEC [Concomitant]
  9. OMEPRAZOLE [Concomitant]
  10. BRONCHODUAL [Concomitant]
  11. OMIX [Concomitant]

REACTIONS (3)
  - ECCHYMOSIS [None]
  - PURPURA [None]
  - THROMBOCYTOPENIA [None]
